FAERS Safety Report 4711989-5 (Version None)
Quarter: 2005Q3

REPORT INFORMATION
  Report Type: 
  Country: None (occurrence: None)
  Receive Date: 20050711
  Receipt Date: 20050711
  Transmission Date: 20060218
  Serious: Yes (Hospitalization)
  Sender: FDA-Public Use
  Company Number: None

PATIENT
  Sex: Male
  Weight: 69.4003 kg

DRUGS (5)
  1. TAXOTERE [Suspect]
     Indication: GASTRIC CANCER
     Dosage: 35 MG /M2 IV
     Route: 042
     Dates: start: 20050531
  2. TAXOTERE [Suspect]
     Indication: GASTRIC CANCER
     Dosage: 35 MG /M2 IV
     Route: 042
     Dates: start: 20050606
  3. OXALIPLATIN D1+ D 8 Q21 DAYS [Suspect]
     Indication: GASTRIC CANCER
     Dosage: 50 MG /M2 IV
     Route: 042
     Dates: start: 20050531
  4. OXALIPLATIN D1+ D 8 Q21 DAYS [Suspect]
     Indication: GASTRIC CANCER
     Dosage: 50 MG /M2 IV
     Route: 042
     Dates: start: 20050606
  5. XELODA [Concomitant]
     Indication: GASTRIC CANCER
     Dosage: 850 MG/M2 PO
     Route: 048
     Dates: start: 20050531, end: 20050608

REACTIONS (2)
  - ABDOMINAL PAIN [None]
  - CONSTIPATION [None]
